FAERS Safety Report 10157766 (Version 1)
Quarter: 2014Q2

REPORT INFORMATION
  Report Type: Spontaneous
  Country: AE (occurrence: AE)
  Receive Date: 20140507
  Receipt Date: 20140507
  Transmission Date: 20141212
  Serious: Yes (Hospitalization, Other)
  Sender: FDA-Public Use
  Company Number: AE-ABBVIE-14P-166-1231868-00

PATIENT
  Age: 57 Year
  Sex: Female
  Weight: 120 kg

DRUGS (1)
  1. HUMIRA [Suspect]
     Indication: PSORIASIS
     Route: 058
     Dates: start: 201312, end: 201402

REACTIONS (2)
  - Post procedural complication [Unknown]
  - Liposuction [Unknown]
